FAERS Safety Report 5208874-1 (Version None)
Quarter: 2007Q1

REPORT INFORMATION
  Report Type: 
  Country: None (occurrence: None)
  Receive Date: 20070111
  Receipt Date: 20070111
  Transmission Date: 20070707
  Serious: Yes (Death)
  Sender: FDA-Public Use
  Company Number: None

PATIENT
  Sex: Male
  Weight: 127.4 kg

DRUGS (9)
  1. VELCADE [Suspect]
     Indication: MULTIPLE MYELOMA
     Dosage: 1.3 MG/M2 DAYS 1, 4, 8 AND 11 IV
     Route: 042
     Dates: start: 20061214, end: 20061214
  2. DOXORUBICIN HCL [Suspect]
     Indication: MULTIPLE MYELOMA
     Dosage: 15 MG/M2 DAYS 1 AND 8 IV
     Route: 042
     Dates: start: 20061214, end: 20061214
  3. KEPPRA [Concomitant]
  4. ACYCLOVIR [Concomitant]
  5. ALLOPURINOL SODIUM [Concomitant]
  6. DEXAMETHASONE [Concomitant]
  7. DOLASENTRON [Concomitant]
  8. MOXIFLOXACIN [Concomitant]
  9. PANTOPRAZOLE SODIUM [Concomitant]

REACTIONS (14)
  - AGITATION [None]
  - CONVULSION [None]
  - DELIRIUM [None]
  - DISEASE PROGRESSION [None]
  - DYSKINESIA [None]
  - DYSPNOEA [None]
  - ENCEPHALOPATHY [None]
  - HAEMORRHAGE [None]
  - HYPOXIA [None]
  - MENTAL STATUS CHANGES [None]
  - NERVOUS SYSTEM DISORDER [None]
  - PULMONARY OEDEMA [None]
  - RESPIRATORY DISORDER [None]
  - SUBDURAL HAEMATOMA [None]
